FAERS Safety Report 8606649-4 (Version None)
Quarter: 2012Q3

REPORT INFORMATION
  Report Type: 
  Country: None (occurrence: None)
  Receive Date: 20120820
  Receipt Date: 20120815
  Transmission Date: 20120928
  Serious: Yes (Death, Other)
  Sender: FDA-Public Use
  Company Number: JP-PFIZER INC-2012198953

PATIENT
  Age: 51 Year
  Sex: Male

DRUGS (7)
  1. CYCLOPHOSPHAMIDE [Suspect]
     Indication: LYMPHOMA
     Dosage: 1200 MG, UNK
  2. VINCRISTINE [Suspect]
     Indication: LYMPHOMA
     Dosage: 2 MG, UNK
  3. METHYLPREDNISOLONE [Suspect]
     Dosage: 60 MG/DAY
  4. ALLOPURINOL [Suspect]
     Dosage: UNK
  5. METHYLPREDNISOLONE [Suspect]
     Indication: LYMPHOMA
     Dosage: 250 MG/DAY
  6. DOXORUBICIN [Suspect]
     Indication: LYMPHOMA
     Dosage: 80 MG, UNK
  7. SODIUM BICARBONATE [Suspect]
     Indication: METABOLIC ACIDOSIS

REACTIONS (6)
  - TUMOUR LYSIS SYNDROME [None]
  - HYPERPHOSPHATAEMIA [None]
  - GASTROINTESTINAL HAEMORRHAGE [None]
  - HYPOPHOSPHATAEMIA [None]
  - DISSEMINATED INTRAVASCULAR COAGULATION [None]
  - METABOLIC ACIDOSIS [None]
